FAERS Safety Report 9243386 (Version 1)
Quarter: 2013Q2

REPORT INFORMATION
  Report Type: Spontaneous
  Country: FR (occurrence: FR)
  Receive Date: 20130420
  Receipt Date: 20130420
  Transmission Date: 20140414
  Serious: Yes (Hospitalization)
  Sender: FDA-Public Use
  Company Number: FR-B.I. PHARMACEUTICALS,INC./RIDGEFIELD-2013-FF-01181FF

PATIENT
  Age: 86 Year
  Sex: Male

DRUGS (3)
  1. SPIRIVA [Suspect]
     Dosage: 18 MCG
     Route: 055
  2. KARDEGIC [Suspect]
     Dosage: 75 MG
     Route: 048
     Dates: end: 20130219
  3. COZAAR [Concomitant]
     Dosage: 100 MG
     Route: 048

REACTIONS (1)
  - Cerebral haematoma [Unknown]
